FAERS Safety Report 15349469 (Version 3)
Quarter: 2019Q1

REPORT INFORMATION
  Report Type: Spontaneous
  Country: US (occurrence: US)
  Receive Date: 20180904
  Receipt Date: 20190305
  Transmission Date: 20190417
  Serious: Yes (Other)
  Sender: FDA-Public Use
  Company Number: US-ACTELION-A-NJ2018-177838

PATIENT
  Sex: Male

DRUGS (1)
  1. OPSUMIT [Suspect]
     Active Substance: MACITENTAN
     Indication: PULMONARY ARTERIAL HYPERTENSION
     Dosage: 10 MG, QD
     Route: 048
     Dates: start: 20170220

REACTIONS (4)
  - Gingival disorder [Unknown]
  - Hypoacusis [Unknown]
  - Middle ear effusion [Unknown]
  - Deafness [Unknown]

NARRATIVE: CASE EVENT DATE: 2018
